FAERS Safety Report 5928732-4 (Version None)
Quarter: 2008Q4

REPORT INFORMATION
  Report Type: 
  Country: None (occurrence: None)
  Receive Date: 20081023
  Receipt Date: 20081016
  Transmission Date: 20090506
  Serious: Yes (Hospitalization)
  Sender: FDA-Public Use
  Company Number: FR-MERCK-0803FRA00063

PATIENT
  Age: 75 Year
  Sex: Female

DRUGS (11)
  1. NOROXIN [Suspect]
     Indication: URINARY TRACT INFECTION
     Route: 048
     Dates: start: 20080207, end: 20080210
  2. NOROXIN [Suspect]
     Route: 048
     Dates: start: 20020101, end: 20020101
  3. LEVOTHYROXINE SODIUM [Concomitant]
     Indication: HYPOTHYROIDISM
     Route: 048
     Dates: start: 19870101
  4. BROMOCRIPTINE MESYLATE [Concomitant]
     Route: 048
     Dates: start: 19870101
  5. NIAOULI OIL AND QUININE BENZOATE AND THIAMINE HYDROCHLORIDE [Concomitant]
     Indication: MUSCLE SPASMS
     Route: 048
     Dates: start: 20070701
  6. ACETAMINOPHEN [Concomitant]
     Route: 048
     Dates: start: 20070701
  7. KETOPROFEN [Concomitant]
     Route: 061
     Dates: start: 20070701
  8. FENOFIBRATE [Concomitant]
     Indication: DYSLIPIDAEMIA
     Route: 048
     Dates: start: 20040101
  9. FUROSEMIDE [Concomitant]
     Route: 048
     Dates: start: 20040101
  10. HYDROCORTISONE [Concomitant]
     Indication: HYPOPITUITARISM
     Route: 048
     Dates: start: 19870101
  11. RANITIDINE [Concomitant]
     Indication: PROPHYLAXIS AGAINST GASTROINTESTINAL ULCER
     Route: 048
     Dates: start: 20040101

REACTIONS (2)
  - ACUTE GENERALISED EXANTHEMATOUS PUSTULOSIS [None]
  - DRUG ERUPTION [None]
